FAERS Safety Report 5693140-0 (Version None)
Quarter: 2008Q2

REPORT INFORMATION
  Report Type: 
  Country: None (occurrence: None)
  Receive Date: 20080402
  Receipt Date: 20080402
  Transmission Date: 20081010
  Serious: Yes (Life-Threatening, Other)
  Sender: FDA-Public Use
  Company Number: None

PATIENT
  Age: 34 Year
  Sex: Female
  Weight: 90.7194 kg

DRUGS (1)
  1. ACCUTANE [Suspect]
     Indication: SWEAT GLAND INFECTION
     Dosage: PO; LESS THEN 2 MONTHS
     Route: 048
     Dates: start: 20020601, end: 20020801

REACTIONS (8)
  - ABNORMAL BEHAVIOUR [None]
  - ANGER [None]
  - ANXIETY [None]
  - DEPRESSION [None]
  - IMPAIRED WORK ABILITY [None]
  - NIGHTMARE [None]
  - PANIC ATTACK [None]
  - PERSONALITY CHANGE [None]
